FAERS Safety Report 5260254-9 (Version None)
Quarter: 2007Q1

REPORT INFORMATION
  Report Type: 
  Country: None (occurrence: None)
  Receive Date: 20070309
  Receipt Date: 20060518
  Transmission Date: 20070707
  Serious: No
  Sender: FDA-Public Use
  Company Number: CHPA2006US04666

PATIENT
  Age: 60 Year
  Sex: Female
  Weight: 91.4 kg

DRUGS (6)
  1. NICORETTE [Suspect]
     Route: 002
  2. NICOTINE [Suspect]
     Dosage: 21MG PER DAY
     Route: 062
     Dates: end: 20060506
  3. ANTIHYPERTENSIVE (UNSPECIFIED) [Concomitant]
     Indication: HYPERTENSION
  4. PLAVIX [Concomitant]
  5. ASPIRIN [Concomitant]
  6. ANTIBIOTIC [Concomitant]

REACTIONS (6)
  - APPLICATION SITE ERYTHEMA [None]
  - APPLICATION SITE PRURITUS [None]
  - DERMATITIS CONTACT [None]
  - DRUG ADMINISTRATION ERROR [None]
  - DRUG INEFFECTIVE [None]
  - TREATMENT NONCOMPLIANCE [None]
